FAERS Safety Report 24563798 (Version 1)
Quarter: 2024Q4

REPORT INFORMATION
  Report Type: Spontaneous
  Country: IN (occurrence: IN)
  Receive Date: 20241030
  Receipt Date: 20241030
  Transmission Date: 20250114
  Serious: Yes (Other)
  Sender: ROCHE
  Company Number: IN-002147023-NVSC2024IN208695

PATIENT
  Age: 77 Year
  Sex: Female
  Weight: 64 kg

DRUGS (3)
  1. LUCENTIS [Suspect]
     Active Substance: RANIBIZUMAB
     Indication: Retinal neovascularisation
     Dosage: UNK
     Route: 065
  2. AVASTIN [Suspect]
     Active Substance: BEVACIZUMAB
     Indication: Retinal neovascularisation
     Dosage: UNK
     Route: 065
  3. BROLUCIZUMAB [Suspect]
     Active Substance: BROLUCIZUMAB
     Indication: Retinal neovascularisation
     Dosage: UNK, ONCE/SINGLE (PRN)
     Route: 050
     Dates: start: 20240919, end: 20240919

REACTIONS (6)
  - Iridocyclitis [Recovered/Resolved with Sequelae]
  - Cataract [Unknown]
  - Eye pain [Unknown]
  - Visual impairment [Unknown]
  - Therapeutic response decreased [Unknown]
  - Ocular hyperaemia [Unknown]

NARRATIVE: CASE EVENT DATE: 20241003
